FAERS Safety Report 13335470 (Version 7)
Quarter: 2017Q2

REPORT INFORMATION
  Report Type: Spontaneous
  Country: US (occurrence: US)
  Receive Date: 20170315
  Receipt Date: 20170627
  Transmission Date: 20170830
  Serious: Yes (Other)
  Sender: FDA-Public Use
  Company Number: PHEH2017US007648

PATIENT
  Sex: Female

DRUGS (2)
  1. ZOFRAN [Suspect]
     Active Substance: ONDANSETRON HYDROCHLORIDE
     Indication: PRODUCT USED FOR UNKNOWN INDICATION
     Route: 048
  2. ONDANSETRON [Suspect]
     Active Substance: ONDANSETRON
     Indication: VOMITING IN PREGNANCY
     Dosage: 1 DF, EVERY 4 TO 6 HOURS, PRN
     Route: 065
     Dates: start: 20140320, end: 201404

REACTIONS (8)
  - Gestational hypertension [Unknown]
  - Hypothyroidism [Unknown]
  - Emotional distress [Unknown]
  - Thrombophlebitis superficial [Unknown]
  - Product use issue [Unknown]
  - Pre-eclampsia [Unknown]
  - Maternal exposure during pregnancy [Unknown]
  - Injury [Unknown]
